FAERS Safety Report 4742446-8 (Version None)
Quarter: 2005Q3

REPORT INFORMATION
  Report Type: 
  Country: None (occurrence: None)
  Receive Date: 20050811
  Receipt Date: 20050801
  Transmission Date: 20060218
  Serious: Yes (Hospitalization)
  Sender: FDA-Public Use
  Company Number: AR-ABBOTT-05P-007-0307432-00

PATIENT
  Age: 50 Year
  Sex: Female

DRUGS (3)
  1. VALCOTE [Suspect]
     Indication: MANIA
     Dates: start: 20050720, end: 20050727
  2. CLONAZEPAM [Concomitant]
     Indication: BIPOLAR DISORDER
     Route: 048
  3. FLUOXETINE [Concomitant]
     Indication: BIPOLAR DISORDER
     Route: 048

REACTIONS (3)
  - HYPERAMMONAEMIA [None]
  - LOSS OF CONSCIOUSNESS [None]
  - SENSORY DISTURBANCE [None]
